FAERS Safety Report 10738765 (Version 1)
Quarter: 2015Q1

REPORT INFORMATION
  Report Type: Spontaneous
  Country: US (occurrence: US)
  Receive Date: 20150126
  Receipt Date: 20150126
  Transmission Date: 20150721
  Serious: Yes (Other)
  Sender: FDA-Public Use
  Company Number: US-LUNDBECK-DKLU1107826

PATIENT
  Age: 45 Year
  Sex: Female

DRUGS (5)
  1. MIDODRINE [Concomitant]
     Active Substance: MIDODRINE
     Indication: PRODUCT USED FOR UNKNOWN INDICATION
     Route: 048
  2. NORTHERA [Suspect]
     Active Substance: DROXIDOPA
     Route: 048
     Dates: start: 20150116
  3. NORTHERA [Suspect]
     Active Substance: DROXIDOPA
     Indication: ORTHOSTATIC HYPOTENSION
     Route: 048
     Dates: start: 20150106
  4. CLONIDINE. [Concomitant]
     Active Substance: CLONIDINE
     Indication: TACHYCARDIA
     Route: 048
  5. NORTHERA [Suspect]
     Active Substance: DROXIDOPA
     Route: 048
     Dates: start: 20150113

REACTIONS (4)
  - Dyspnoea exertional [Unknown]
  - Tachycardia [Unknown]
  - Chest pain [Unknown]
  - Dyspnoea at rest [Unknown]

NARRATIVE: CASE EVENT DATE: 201501
